FAERS Safety Report 22322823 (Version 1)
Quarter: 2023Q2

REPORT INFORMATION
  Report Type: Spontaneous
  Country: US (occurrence: US)
  Receive Date: 20230516
  Receipt Date: 20230516
  Transmission Date: 20230721
  Serious: No
  Sender: FDA-Public Use
  Company Number: US-JAZZ-2022-US-024045

PATIENT
  Age: 44 Year
  Sex: Male

DRUGS (11)
  1. SUNOSI [Suspect]
     Active Substance: SOLRIAMFETOL
     Indication: Product used for unknown indication
     Dosage: 75 MILLIGRAM TABLET
     Route: 048
  2. SUNOSI [Suspect]
     Active Substance: SOLRIAMFETOL
     Dosage: 150 MILLIGRAM TABLET
     Route: 048
  3. CELEBREX [Concomitant]
     Active Substance: CELECOXIB
  4. XYWAV [Concomitant]
     Active Substance: CALCIUM OXYBATE\MAGNESIUM OXYBATE\POTASSIUM OXYBATE\SODIUM OXYBATE
  5. LISINOPRIL [Concomitant]
     Active Substance: LISINOPRIL
  6. VERAPAMIL [Concomitant]
     Active Substance: VERAPAMIL HYDROCHLORIDE
  7. VITAMIN D3 [Concomitant]
     Active Substance: CHOLECALCIFEROL
  8. CIALIS [Concomitant]
     Active Substance: TADALAFIL
  9. TESTOSTERONE [Concomitant]
     Active Substance: TESTOSTERONE
  10. DECONEX DMX [Concomitant]
     Active Substance: DEXTROMETHORPHAN HYDROBROMIDE\GUAIFENESIN\PHENYLEPHRINE HYDROCHLORIDE
  11. LEVOCETIRIZINE DIHYDROCHLORIDE [Concomitant]
     Active Substance: LEVOCETIRIZINE DIHYDROCHLORIDE

REACTIONS (3)
  - Chest pain [Unknown]
  - Dehydration [Unknown]
  - Amphetamines positive [Unknown]

NARRATIVE: CASE EVENT DATE: 20220715
